FAERS Safety Report 6370144-6 (Version None)
Quarter: 2009Q3

REPORT INFORMATION
  Report Type: 
  Country: None (occurrence: None)
  Receive Date: 20090921
  Receipt Date: 20090921
  Transmission Date: 20100115
  Serious: Yes (Disabling)
  Sender: FDA-Public Use
  Company Number: None

PATIENT
  Sex: Female
  Weight: 83.9154 kg

DRUGS (1)
  1. ZICAM [Suspect]
     Indication: NASOPHARYNGITIS
     Dosage: AS INSTRUCTED ON BOTTLE
     Dates: start: 20031001, end: 20040201

REACTIONS (2)
  - AGEUSIA [None]
  - ANOSMIA [None]
